FAERS Safety Report 15983641 (Version 1)
Quarter: 2019Q1

REPORT INFORMATION
  Report Type: Spontaneous
  Country: CN (occurrence: CN)
  Receive Date: 20190220
  Receipt Date: 20190220
  Transmission Date: 20190418
  Serious: Yes (Other)
  Sender: FDA-Public Use
  Company Number: CN-BAXTER-2019BAX003389

PATIENT
  Age: 71 Year
  Sex: Female
  Weight: 45.8 kg

DRUGS (12)
  1. 0.9% SODIUM CHLORIDE INJECTION [Suspect]
     Active Substance: SODIUM CHLORIDE
     Indication: MEDICATION DILUTION
     Dosage: 1-5 COURSE
     Route: 041
  2. LIPUSU [Suspect]
     Active Substance: PACLITAXEL
     Dosage: DILUTED WITH 500 ML OF GLUCOSE INJECTION, LIPOSOME INJECTION, 6 TH COURSE
     Route: 041
     Dates: start: 20181204, end: 20181204
  3. GLUCOSE INJECTION [Suspect]
     Active Substance: DEXTROSE
     Dosage: DILUTED WITH 210 MG OF LIPUSU, QD, 6TH COURSE
     Route: 041
     Dates: start: 20181204, end: 20181204
  4. ENDOXAN [Suspect]
     Active Substance: CYCLOPHOSPHAMIDE
     Dosage: DILUTED WITH 250 ML OF SODIUM CHLORIDE, 6TH COURSE
     Route: 041
     Dates: start: 20181204, end: 20181204
  5. 0.9% SODIUM CHLORIDE INJECTION [Suspect]
     Active Substance: SODIUM CHLORIDE
     Dosage: DOSAGE FORM: INJECTION, DILUTED WITH 0.8 G OF CYCLOPHOSPHAMIDE, QD, 6 TH COURSE
     Route: 041
     Dates: start: 20181204, end: 20181204
  6. 0.9% SODIUM CHLORIDE INJECTION [Suspect]
     Active Substance: SODIUM CHLORIDE
     Dosage: DOSE RE-INTRODUCED
     Route: 041
  7. GLUCOSE INJECTION [Suspect]
     Active Substance: DEXTROSE
     Indication: MEDICATION DILUTION
     Dosage: 1-5 COURSE
     Route: 041
  8. LIPUSU [Suspect]
     Active Substance: PACLITAXEL
     Indication: BREAST CANCER FEMALE
     Dosage: 1-5 COURSE, LIPOSOME INJECTION
     Route: 041
  9. ENDOXAN [Suspect]
     Active Substance: CYCLOPHOSPHAMIDE
     Dosage: DOSE RE-INTRODUCED
     Route: 041
  10. ENDOXAN [Suspect]
     Active Substance: CYCLOPHOSPHAMIDE
     Indication: BREAST CANCER FEMALE
     Dosage: 1-5 COURSE
     Route: 041
  11. LIPUSU [Suspect]
     Active Substance: PACLITAXEL
     Dosage: DOSE RE-INTRODUCED, LIPOSOME INJECTION
     Route: 041
  12. GLUCOSE INJECTION [Suspect]
     Active Substance: DEXTROSE
     Dosage: DOSE RE-INTRODUCED
     Route: 041

REACTIONS (1)
  - Bone marrow failure [Recovered/Resolved]

NARRATIVE: CASE EVENT DATE: 20181212
